FAERS Safety Report 8514837-0 (Version None)
Quarter: 2012Q3

REPORT INFORMATION
  Report Type: 
  Country: None (occurrence: None)
  Receive Date: 20120717
  Receipt Date: 20120713
  Transmission Date: 20120928
  Serious: Yes (Other)
  Sender: FDA-Public Use
  Company Number: US-ROCHE-1062632

PATIENT
  Sex: Male
  Weight: 88.53 kg

DRUGS (1)
  1. ACCUTANE [Suspect]
     Indication: ACNE CYSTIC
     Route: 065
     Dates: start: 19850329, end: 19850729

REACTIONS (5)
  - DIVERTICULITIS [None]
  - DEPRESSION [None]
  - COLONIC POLYP [None]
  - INFLAMMATORY BOWEL DISEASE [None]
  - DRY SKIN [None]
